FAERS Safety Report 8302650-9 (Version None)
Quarter: 2012Q2

REPORT INFORMATION
  Report Type: 
  Country: None (occurrence: None)
  Receive Date: 20120420
  Receipt Date: 20120412
  Transmission Date: 20120825
  Serious: Yes (Hospitalization)
  Sender: FDA-Public Use
  Company Number: IE-MEDIMMUNE-MEDI-0015115

PATIENT
  Sex: Male

DRUGS (3)
  1. IPRATROPIUM BROMIDE [Concomitant]
  2. GLYCERIN THROAT SYRUP [Concomitant]
  3. SYNAGIS [Suspect]
     Route: 030
     Dates: start: 20110926, end: 20110926

REACTIONS (2)
  - PYREXIA [None]
  - RESPIRATORY TRACT CONGESTION [None]
